FAERS Safety Report 9774350 (Version 1)
Quarter: 2013Q4

REPORT INFORMATION
  Report Type: Spontaneous
  Country: AU (occurrence: AU)
  Receive Date: 20131220
  Receipt Date: 20131220
  Transmission Date: 20140711
  Serious: Yes (Other)
  Sender: FDA-Public Use
  Company Number: AU-MERCK-1312AUS006705

PATIENT
  Age: 1 Year
  Sex: Female

DRUGS (5)
  1. SAPHRIS [Suspect]
     Dosage: 10 MG, WAFER
     Route: 064
     Dates: start: 20111206, end: 20120814
  2. OLANZAPINE [Suspect]
     Dosage: 10 MG, UNK
     Route: 064
     Dates: start: 20120515
  3. RISPERIDONE [Suspect]
     Dosage: 2 MG, UNK
     Route: 064
  4. DIAZEPAM [Concomitant]
     Dosage: UNK
     Route: 064
  5. VITAMINS (UNSPECIFIED) [Concomitant]
     Dosage: UNK
     Route: 064

REACTIONS (3)
  - Foetal exposure during pregnancy [Recovered/Resolved]
  - Streptococcal infection [Recovered/Resolved]
  - Neonatal respiratory distress syndrome [Recovered/Resolved]
